FAERS Safety Report 8967282 (Version 1)
Quarter: 2012Q4

REPORT INFORMATION
  Report Type: 
  Country: US (occurrence: US)
  Receive Date: 20121214
  Receipt Date: 20121214
  Transmission Date: 20130627
  Serious: No
  Sender: FDA-Public Use
  Company Number: US-GLAXOSMITHKLINE-A0980474A

PATIENT
  Sex: Female

DRUGS (2)
  1. FLONASE [Suspect]
     Indication: RHINITIS ALLERGIC
     Route: 045
  2. VERAMYST [Suspect]
     Indication: RHINITIS ALLERGIC
     Route: 045

REACTIONS (1)
  - Drug ineffective [Unknown]
